FAERS Safety Report 4331653-4 (Version None)
Quarter: 2004Q2

REPORT INFORMATION
  Report Type: 
  Country: None (occurrence: None)
  Receive Date: 20040405
  Receipt Date: 20040325
  Transmission Date: 20050107
  Serious: Yes (Hospitalization)
  Sender: FDA-Public Use
  Company Number: AT-MERCK-0403AUT00012

PATIENT
  Age: 28 Year
  Sex: Female

DRUGS (2)
  1. ITRACONAZOLE [Suspect]
     Indication: BRONCHOPULMONARY ASPERGILLOSIS
     Route: 065
  2. CANCIDAS [Suspect]
     Indication: BRONCHOPULMONARY ASPERGILLOSIS
     Route: 051

REACTIONS (5)
  - BRONCHOPULMONARY ASPERGILLOSIS [None]
  - IMMUNOSUPPRESSION [None]
  - PANCYTOPENIA [None]
  - PNEUMONIA [None]
  - UNRELATED DONOR BONE MARROW TRANSPLANTATION THERAPY [None]
